FAERS Safety Report 18413855 (Version 1)
Quarter: 2020Q4

REPORT INFORMATION
  Report Type: Spontaneous
  Country: PT (occurrence: PT)
  Receive Date: 20201022
  Receipt Date: 20201022
  Transmission Date: 20210114
  Serious: Yes (Hospitalization)
  Sender: FDA-Public Use
  Company Number: PT-HETERO-HET2020PT01124

PATIENT
  Age: 45 Year
  Sex: Female

DRUGS (14)
  1. LEVETIRACETAM. [Suspect]
     Active Substance: LEVETIRACETAM
     Indication: EPILEPSY
     Dosage: 1000 MG, QD
     Route: 065
     Dates: start: 2007
  2. CARBAMAZEPINE. [Concomitant]
     Active Substance: CARBAMAZEPINE
     Dosage: 1200 MG, QD
     Route: 065
     Dates: start: 2014
  3. CARBAMAZEPINE. [Concomitant]
     Active Substance: CARBAMAZEPINE
     Dosage: 400 MG 1-0-0-1
     Route: 065
  4. RISPERIDONE. [Concomitant]
     Active Substance: RISPERIDONE
     Indication: EPILEPSY
     Dosage: 37.5 MG/ML
     Route: 030
  5. RISPERIDONE. [Concomitant]
     Active Substance: RISPERIDONE
     Dosage: 50 MG/ML
     Route: 030
  6. ZOTEPINE [Concomitant]
     Active Substance: ZOTEPINE
     Indication: EPILEPSY
     Dosage: 300 MG, QD
     Route: 065
  7. CLOBAZAM. [Concomitant]
     Active Substance: CLOBAZAM
     Dosage: 40 MG, QD
     Route: 065
     Dates: start: 2010
  8. ZOTEPINE [Concomitant]
     Active Substance: ZOTEPINE
     Dosage: UNK (DOSE DECREASED)
     Route: 065
  9. CARBAMAZEPINE. [Concomitant]
     Active Substance: CARBAMAZEPINE
     Indication: EPILEPSY
     Dosage: 1200 MG, QD
     Route: 065
     Dates: start: 2007
  10. CARBAMAZEPINE. [Concomitant]
     Active Substance: CARBAMAZEPINE
     Dosage: 1800 MG, QD
     Route: 065
     Dates: start: 2011
  11. CLONAZEPAM. [Concomitant]
     Active Substance: CLONAZEPAM
     Indication: EPILEPSY
     Dosage: 4 MG, QD
     Route: 065
  12. CLOBAZAM. [Concomitant]
     Active Substance: CLOBAZAM
     Indication: EPILEPSY
     Dosage: 20 MG, QD (0-0-1-0)
     Route: 065
     Dates: start: 2007
  13. CLONAZEPAM. [Concomitant]
     Active Substance: CLONAZEPAM
     Dosage: 2 MG (1/4-1/4-0-1)
     Route: 065
  14. LEVETIRACETAM. [Suspect]
     Active Substance: LEVETIRACETAM
     Dosage: 4000 MG,QD
     Route: 065
     Dates: start: 2009

REACTIONS (2)
  - Overdose [Recovered/Resolved]
  - Psychotic disorder [Recovered/Resolved]
